FAERS Safety Report 21999915 (Version 1)
Quarter: 2023Q1

REPORT INFORMATION
  Report Type: Spontaneous
  Country: US (occurrence: US)
  Receive Date: 20230216
  Receipt Date: 20230216
  Transmission Date: 20230417
  Serious: No
  Sender: FDA-Public Use
  Company Number: US-BEH-2023155274

PATIENT
  Sex: Female
  Weight: 95.238 kg

DRUGS (1)
  1. PRIVIGEN [Suspect]
     Active Substance: HUMAN IMMUNOGLOBULIN G
     Indication: Selective IgG subclass deficiency
     Dosage: 40 GRAM, QMT
     Route: 042
     Dates: start: 20200123

REACTIONS (2)
  - Weight increased [Unknown]
  - Infection [Unknown]
